FAERS Safety Report 14588282 (Version 2)
Quarter: 2018Q1

REPORT INFORMATION
  Report Type: Report from Study
  Country: None (occurrence: US)
  Receive Date: 20180301
  Receipt Date: 20180309
  Transmission Date: 20180509
  Serious: Yes (Death, Hospitalization, Other)
  Sender: FDA-Public Use
  Company Number: US-BAUSCH-BL-2018-005664

PATIENT
  Age: 54 Year
  Sex: Male

DRUGS (1)
  1. XIFAXAN [Suspect]
     Active Substance: RIFAXIMIN
     Indication: PRODUCT USED FOR UNKNOWN INDICATION
     Route: 048

REACTIONS (14)
  - Liver disorder [Unknown]
  - Acute kidney injury [Unknown]
  - Haemorrhagic anaemia [Unknown]
  - Sleep apnoea syndrome [Unknown]
  - Death [Fatal]
  - Hepatorenal syndrome [Unknown]
  - Non-alcoholic steatohepatitis [Unknown]
  - Gastrointestinal haemorrhage [Unknown]
  - Obesity [Unknown]
  - Alcohol abuse [Unknown]
  - Ascites [Unknown]
  - Malnutrition [Unknown]
  - Gastric bypass [Unknown]
  - Traumatic ulcer [Unknown]

NARRATIVE: CASE EVENT DATE: 2017
